FAERS Safety Report 4847016-9 (Version None)
Quarter: 2005Q4

REPORT INFORMATION
  Report Type: 
  Country: None (occurrence: None)
  Receive Date: 20051207
  Receipt Date: 20051125
  Transmission Date: 20060501
  Serious: Yes (Other)
  Sender: FDA-Public Use
  Company Number: BE-JNJFOC-20051104301

PATIENT
  Sex: Female
  Weight: 52 kg

DRUGS (1)
  1. SPORANOX [Suspect]
     Route: 048
     Dates: start: 20051027, end: 20051105

REACTIONS (2)
  - ABORTION SPONTANEOUS [None]
  - DRUG EXPOSURE DURING PREGNANCY [None]
